FAERS Safety Report 5679177-6 (Version None)
Quarter: 2008Q1

REPORT INFORMATION
  Report Type: 
  Country: None (occurrence: None)
  Receive Date: 20080321
  Receipt Date: 20080310
  Transmission Date: 20080703
  Serious: Yes (Other)
  Sender: FDA-Public Use
  Company Number: CERZ-1000122

PATIENT
  Sex: Female

DRUGS (2)
  1. CEREZYME [Suspect]
     Indication: GAUCHER'S DISEASE
  2. IMIGLUCERASE (IMIGLUCERASE) [Concomitant]

REACTIONS (1)
  - BREAST CANCER FEMALE [None]
